FAERS Safety Report 5630665-8 (Version None)
Quarter: 2008Q1

REPORT INFORMATION
  Report Type: 
  Country: None (occurrence: None)
  Receive Date: 20080219
  Receipt Date: 20080121
  Transmission Date: 20080703
  Serious: Yes (Other)
  Sender: FDA-Public Use
  Company Number: TR-ELI_LILLY_AND_COMPANY-TR200801006083

PATIENT
  Age: 65 Year
  Sex: Male
  Weight: 62 kg

DRUGS (3)
  1. HUMALOG MIX 75/25 [Suspect]
     Dosage: 26 UNITS/MORNING AND 14 UNITS/EVENING
     Route: 058
     Dates: start: 20070101
  2. HUMALOG MIX 75/25 [Suspect]
     Dosage: 14 IU, EACH EVENING
     Dates: start: 20070101
  3. ORAL ANTIDIABETICS [Concomitant]

REACTIONS (2)
  - BLOOD GLUCOSE DECREASED [None]
  - PALPITATIONS [None]
